FAERS Safety Report 10944562 (Version 1)
Quarter: 2015Q1

REPORT INFORMATION
  Report Type: Spontaneous
  Country: US (occurrence: None)
  Receive Date: 20150320
  Receipt Date: 20150320
  Transmission Date: 20150721
  Serious: Yes (Hospitalization)
  Sender: FDA-Public Use
  Company Number: None

PATIENT
  Age: 71 Year
  Sex: Male
  Weight: 94.1 kg

DRUGS (2)
  1. CASODEX [Suspect]
     Active Substance: BICALUTAMIDE
     Dates: end: 20150226
  2. LEUPROLIDE ACETATE. [Suspect]
     Active Substance: LEUPROLIDE ACETATE
     Dates: end: 20150106

REACTIONS (10)
  - Myocardial infarction [None]
  - Intracranial aneurysm [None]
  - Unresponsive to stimuli [None]
  - Vomiting [None]
  - Atrioventricular block first degree [None]
  - Musculoskeletal pain [None]
  - Confusional state [None]
  - Vertebral artery stenosis [None]
  - Neck pain [None]
  - Carotid artery stenosis [None]

NARRATIVE: CASE EVENT DATE: 20150226
